FAERS Safety Report 8534526-6 (Version None)
Quarter: 2012Q3

REPORT INFORMATION
  Report Type: 
  Country: None (occurrence: None)
  Receive Date: 20120724
  Receipt Date: 20120718
  Transmission Date: 20120928
  Serious: Yes (Life-Threatening)
  Sender: FDA-Public Use
  Company Number: FR-ASTRAZENECA-2012SE50325

PATIENT
  Age: 78 Year
  Sex: Female

DRUGS (6)
  1. DIPRIVAN [Suspect]
     Indication: INDUCTION OF ANAESTHESIA
     Route: 042
     Dates: start: 20120615, end: 20120615
  2. SUXAMETHONIUM [Suspect]
     Indication: INDUCTION OF ANAESTHESIA
     Route: 042
     Dates: start: 20120615, end: 20120615
  3. CIPROFLOXACIN HYDROCHLORIDE [Concomitant]
     Indication: ANTIBIOTIC THERAPY
  4. SUFENTANIL CITRATE [Suspect]
     Indication: INDUCTION OF ANAESTHESIA
     Route: 042
     Dates: start: 20120615, end: 20120615
  5. ROCEPHIN [Concomitant]
     Indication: ANTIBIOTIC THERAPY
  6. GENTAMICIN [Concomitant]
     Indication: ANTIBIOTIC THERAPY

REACTIONS (1)
  - ANAPHYLACTIC SHOCK [None]
